FAERS Safety Report 6740286-1 (Version None)
Quarter: 2010Q2

REPORT INFORMATION
  Report Type: 
  Country: None (occurrence: None)
  Receive Date: 20100521
  Receipt Date: 20100506
  Transmission Date: 20101027
  Serious: Yes (Hospitalization)
  Sender: FDA-Public Use
  Company Number: MPS1-1000296

PATIENT
  Age: 5 Year
  Sex: Female
  Weight: 16 kg

DRUGS (1)
  1. ALDURAZYME      (LARONIDASE)   CONCENTRATE FOR SOLUTION  INFUSION [Suspect]
     Indication: MUCOPOLYSACCHARIDOSIS
     Dosage: 0.54 MG/KG
     Dates: start: 20061010, end: 20100426

REACTIONS (8)
  - CYANOSIS [None]
  - DISEASE PROGRESSION [None]
  - HEADACHE [None]
  - HYDROCEPHALUS [None]
  - IRRITABILITY [None]
  - MUCOPOLYSACCHARIDOSIS I [None]
  - PNEUMONIA [None]
  - VOMITING [None]
